FAERS Safety Report 23806379 (Version 8)
Quarter: 2025Q3

REPORT INFORMATION
  Report Type: Report from Study
  Country: US (occurrence: US)
  Receive Date: 20240502
  Receipt Date: 20250926
  Transmission Date: 20251020
  Serious: Yes (Hospitalization, Other)
  Sender: TAKEDA
  Company Number: US-TAKEDA-2024TUS041136

PATIENT
  Sex: Female

DRUGS (5)
  1. VEDOLIZUMAB [Suspect]
     Active Substance: VEDOLIZUMAB
     Indication: Crohn^s disease
  2. VEDOLIZUMAB [Suspect]
     Active Substance: VEDOLIZUMAB
  3. VEDOLIZUMAB [Suspect]
     Active Substance: VEDOLIZUMAB
  4. VEDOLIZUMAB [Suspect]
     Active Substance: VEDOLIZUMAB
     Indication: Crohn^s disease
  5. VEDOLIZUMAB [Suspect]
     Active Substance: VEDOLIZUMAB

REACTIONS (11)
  - Pneumatosis intestinalis [Unknown]
  - Intestinal ischaemia [Unknown]
  - Crohn^s disease [Unknown]
  - Myocardial infarction [Unknown]
  - Obstruction [Unknown]
  - Poor venous access [Unknown]
  - Chronotropic incompetence [Unknown]
  - Functional gastrointestinal disorder [Unknown]
  - Irritable bowel syndrome [Unknown]
  - Gastrointestinal microorganism overgrowth [Unknown]
  - Abnormal loss of weight [Unknown]
